FAERS Safety Report 23806302 (Version 3)
Quarter: 2024Q2

REPORT INFORMATION
  Report Type: Spontaneous
  Country: GB (occurrence: GB)
  Receive Date: 20240502
  Receipt Date: 20240603
  Transmission Date: 20240715
  Serious: Yes (Other)
  Sender: FDA-Public Use
  Company Number: GB-OTSUKA-2024_010778

PATIENT
  Age: 43 Year
  Sex: Male
  Weight: 96 kg

DRUGS (3)
  1. ARIPIPRAZOLE [Suspect]
     Active Substance: ARIPIPRAZOLE
     Indication: Product used for unknown indication
     Dosage: 10 MG, QD
     Route: 065
  2. DEPIXOL [Concomitant]
     Indication: Product used for unknown indication
     Dosage: 160 MG, QW
     Route: 030
  3. DEPIXOL [Concomitant]
     Indication: Product used for unknown indication
     Dosage: 20 MG
     Route: 030
     Dates: start: 20240215

REACTIONS (2)
  - Psychotic symptom [Not Recovered/Not Resolved]
  - Treatment noncompliance [Unknown]
